FAERS Safety Report 10188205 (Version 1)
Quarter: 2014Q2

REPORT INFORMATION
  Report Type: Spontaneous
  Country: DK (occurrence: FR)
  Receive Date: 20140522
  Receipt Date: 20140522
  Transmission Date: 20141212
  Serious: Yes (Hospitalization)
  Sender: FDA-Public Use
  Company Number: FR-FRI-1000067519

PATIENT
  Age: 85 Year
  Sex: Female

DRUGS (8)
  1. MEMANTINE [Suspect]
     Indication: DEMENTIA ALZHEIMER^S TYPE
     Dosage: 20 MG
     Route: 048
     Dates: start: 201010
  2. MEMANTINE [Suspect]
     Dosage: 10 MG
     Route: 048
  3. CITALOPRAM [Suspect]
     Dosage: 10 MG
     Route: 048
     Dates: start: 200605, end: 20140413
  4. ARICEPT [Suspect]
     Indication: DEMENTIA ALZHEIMER^S TYPE
     Dosage: 10 MG
     Route: 048
     Dates: start: 200511, end: 20140409
  5. SOLUPRED [Suspect]
     Route: 048
     Dates: end: 201404
  6. INEXIUM [Suspect]
     Dosage: 40 MG
     Route: 048
  7. INEXIUM [Suspect]
     Dosage: 20 MG
     Route: 048
  8. ROCEPHINE [Concomitant]

REACTIONS (1)
  - Malaise [Recovered/Resolved]
